FAERS Safety Report 4650685-X (Version None)
Quarter: 2005Q2

REPORT INFORMATION
  Report Type: 
  Country: None (occurrence: None)
  Receive Date: 20050429
  Receipt Date: 20050429
  Transmission Date: 20051028
  Serious: Yes (Life-Threatening, Hospitalization)
  Sender: FDA-Public Use
  Company Number: None

PATIENT
  Sex: Female
  Weight: 77.1115 kg

DRUGS (1)
  1. ORTHO EVRA [Suspect]
     Indication: PULMONARY EMBOLISM
     Dosage: 1 PATCH   1 PER WEEK   TRANSDERMAL
     Route: 062
     Dates: start: 20050403, end: 20050423

REACTIONS (1)
  - PULMONARY EMBOLISM [None]
